FAERS Safety Report 18455774 (Version 1)
Quarter: 2020Q4

REPORT INFORMATION
  Report Type: Other
  Country: US (occurrence: US)
  Receive Date: 20201103
  Receipt Date: 20201103
  Transmission Date: 20210114
  Serious: Yes (Other)
  Sender: FDA-Public Use
  Company Number: US-ROCHE-2399407

PATIENT
  Age: 58 Year
  Sex: Female
  Weight: 52.21 kg

DRUGS (28)
  1. OCREVUS [Suspect]
     Active Substance: OCRELIZUMAB
     Route: 042
     Dates: start: 201704
  2. NEURONTIN [Concomitant]
     Active Substance: GABAPENTIN
     Indication: NEUROPATHY PERIPHERAL
     Dosage: ONGOING: YES
     Route: 048
  3. VENTOLIN [Concomitant]
     Active Substance: ALBUTEROL SULFATE
  4. FLONASE [Concomitant]
     Active Substance: FLUTICASONE PROPIONATE
  5. CALCIUM [Concomitant]
     Active Substance: CALCIUM
     Dosage: 1200 MG BID ;ONGOING: YES
     Route: 048
  6. OCREVUS [Suspect]
     Active Substance: OCRELIZUMAB
     Indication: RELAPSING MULTIPLE SCLEROSIS
     Dosage: ONGOING:YES?DATE OF TREATMENT: 25/MAY/2017, 09/NOV/2017, 26/APR/2019?600 MG IN NS 500 ML IV
     Route: 042
     Dates: start: 2017
  7. NEURONTIN [Concomitant]
     Active Substance: GABAPENTIN
     Indication: SEIZURE
  8. ACYCLOVIR. [Concomitant]
     Active Substance: ACYCLOVIR
     Indication: HERPES ZOSTER
     Route: 048
  9. LOSARTAN. [Concomitant]
     Active Substance: LOSARTAN
     Indication: HYPERTENSION
     Route: 048
  10. SINGULAIR [Concomitant]
     Active Substance: MONTELUKAST SODIUM
     Indication: HYPERSENSITIVITY
     Route: 048
  11. SYMBICORT [Concomitant]
     Active Substance: BUDESONIDE\FORMOTEROL FUMARATE DIHYDRATE
  12. BIOTIN [Concomitant]
     Active Substance: BIOTIN
     Dosage: ONGOING: YES?2000 MG DAILY ;ONGOING: YES
     Route: 048
  13. COUMADIN [Concomitant]
     Active Substance: WARFARIN SODIUM
  14. COUMADIN [Concomitant]
     Active Substance: WARFARIN SODIUM
     Indication: PROTEIN C DEFICIENCY
     Dosage: 7.5 MG OR 10 MG DAILY ;ONGOING: YES
     Route: 048
  15. TIMOLOL. [Concomitant]
     Active Substance: TIMOLOL
     Indication: GLAUCOMA
     Dates: start: 202004
  16. VIT D [COLECALCIFEROL] [Concomitant]
  17. VALIUM [Suspect]
     Active Substance: DIAZEPAM
     Indication: MUSCLE SPASMS
     Route: 048
  18. DIAZEPAM. [Concomitant]
     Active Substance: DIAZEPAM
     Route: 048
  19. ZYRTEC (UNITED STATES) [Concomitant]
     Indication: HYPERSENSITIVITY
     Dosage: EVERY MORNING ;ONGOING: YES
     Route: 048
  20. ZOFRAN [Concomitant]
     Active Substance: ONDANSETRON HYDROCHLORIDE
     Dosage: PRIOR TO INFUSION
     Route: 048
  21. LATANOPROST. [Concomitant]
     Active Substance: LATANOPROST
     Indication: GLAUCOMA
     Dosage: 0.05 % 1 DROP IN EACH EYE AT BEDTIME ;ONGOING: YES
     Route: 047
  22. ALENDRONATE [Concomitant]
     Active Substance: ALENDRONATE SODIUM
     Dosage: 70 MG ONCE A WEEK ;ONGOING: YES
     Route: 048
  23. VITAMIN B12 [Concomitant]
     Active Substance: CYANOCOBALAMIN
     Dosage: 1000 MCG DAILY ;ONGOING: YES
     Route: 048
  24. MAGNESIUM [Concomitant]
     Active Substance: MAGNESIUM
     Dosage: 400 MG DAILY ;ONGOING: YES
     Route: 048
  25. TIZANIDINE. [Concomitant]
     Active Substance: TIZANIDINE
     Indication: MUSCLE SPASMS
     Route: 048
  26. BENADRYL [Concomitant]
     Active Substance: DIPHENHYDRAMINE HYDROCHLORIDE
     Indication: SEASONAL ALLERGY
     Dosage: PRIOR TO OCREVUS INFUSION
     Route: 048
  27. ESTRACE [Concomitant]
     Active Substance: ESTRADIOL
     Indication: BLOOD OESTROGEN DECREASED
     Dosage: ONGOING: YES
  28. PREDNISOLONE. [Concomitant]
     Active Substance: PREDNISOLONE
     Indication: GLAUCOMA

REACTIONS (6)
  - Multiple sclerosis relapse [Recovered/Resolved]
  - Cognitive disorder [Not Recovered/Not Resolved]
  - Conjunctivitis [Not Recovered/Not Resolved]
  - Blepharitis [Not Recovered/Not Resolved]
  - Visual impairment [Recovered/Resolved]
  - Pneumonia [Recovered/Resolved]

NARRATIVE: CASE EVENT DATE: 201905
